FAERS Safety Report 8175187-8 (Version None)
Quarter: 2012Q1

REPORT INFORMATION
  Report Type: 
  Country: None (occurrence: None)
  Receive Date: 20120229
  Receipt Date: 20120215
  Transmission Date: 20120608
  Serious: Yes (Other)
  Sender: FDA-Public Use
  Company Number: US-ENDO PHARMACEUTICALS INC.-PRIM20120001

PATIENT
  Sex: Female

DRUGS (1)
  1. PRIMIDONE [Suspect]
     Indication: ESSENTIAL TREMOR
     Route: 048

REACTIONS (2)
  - CONVULSION [None]
  - ADVERSE EVENT [None]
